FAERS Safety Report 7583082-8 (Version None)
Quarter: 2011Q2

REPORT INFORMATION
  Report Type: 
  Country: None (occurrence: None)
  Receive Date: 20110630
  Receipt Date: 20110620
  Transmission Date: 20111010
  Serious: Yes (Death)
  Sender: FDA-Public Use
  Company Number: DE-ELI_LILLY_AND_COMPANY-DE201012003816

PATIENT

DRUGS (4)
  1. GEMZAR [Suspect]
     Indication: HODGKIN'S DISEASE
     Dosage: UNK, UNKNOWN
     Route: 065
  2. PREDNISONE [Concomitant]
     Indication: HODGKIN'S DISEASE
  3. VINBLASTINE SULFATE [Suspect]
     Indication: HODGKIN'S DISEASE
     Dosage: UNK, UNKNOWN
     Route: 065
  4. DOXORUBICIN HCL [Concomitant]
     Indication: HODGKIN'S DISEASE

REACTIONS (1)
  - TOXICITY TO VARIOUS AGENTS [None]
